FAERS Safety Report 6055148-5 (Version None)
Quarter: 2009Q1

REPORT INFORMATION
  Report Type: 
  Country: None (occurrence: None)
  Receive Date: 20090122
  Receipt Date: 20090112
  Transmission Date: 20090719
  Serious: Yes (Life-Threatening, Other)
  Sender: FDA-Public Use
  Company Number: 2009TJ0010

PATIENT
  Age: 34 Year
  Sex: Female

DRUGS (3)
  1. EPINEPHRINE [Suspect]
     Indication: HYPERSENSITIVITY
     Dosage: 0.3 MG, AS NEEDED, INTRAMUSCULAR/SUBCUTANEOUS
     Route: 030
     Dates: start: 20090107, end: 20090107
  2. ZYRTEC [Concomitant]
  3. PROZAC [Concomitant]

REACTIONS (3)
  - DEVICE MALFUNCTION [None]
  - NEEDLE TRACK MARKS [None]
  - PRODUCT QUALITY ISSUE [None]
